FAERS Safety Report 20237392 (Version 1)
Quarter: 2021Q4

REPORT INFORMATION
  Report Type: Other
  Country: MA (occurrence: None)
  Receive Date: 20211228
  Receipt Date: 20211228
  Transmission Date: 20220303
  Serious: Yes (Other)
  Sender: FDA-Public Use
  Company Number: MA-ROCHE-2985414

PATIENT

DRUGS (2)
  1. MYCOPHENOLATE MOFETIL [Suspect]
     Active Substance: MYCOPHENOLATE MOFETIL
     Indication: Immunosuppression
     Route: 065
  2. TOCILIZUMAB [Suspect]
     Active Substance: TOCILIZUMAB
     Indication: COVID-19
     Route: 065

REACTIONS (5)
  - Septic shock [Unknown]
  - Sarcoidosis [Unknown]
  - Respiratory tract infection [Unknown]
  - COVID-19 [Unknown]
  - Off label use [Unknown]
